FAERS Safety Report 6392079-5 (Version None)
Quarter: 2009Q4

REPORT INFORMATION
  Report Type: 
  Country: None (occurrence: None)
  Receive Date: 20091007
  Receipt Date: 20090930
  Transmission Date: 20100525
  Serious: Yes (Hospitalization)
  Sender: FDA-Public Use
  Company Number: CA-AMGEN-US367067

PATIENT
  Age: 67 Year
  Sex: Male

DRUGS (6)
  1. ENBREL [Suspect]
     Indication: RHEUMATOID ARTHRITIS
     Route: 058
     Dates: start: 20070701
  2. PREDNISONE [Concomitant]
     Route: 048
     Dates: start: 20060101, end: 20070101
  3. PREDNISONE [Concomitant]
     Route: 048
  4. PREDNISONE [Concomitant]
     Route: 048
     Dates: start: 20080701
  5. METHOTREXATE [Concomitant]
     Route: 048
     Dates: end: 20070101
  6. METHOTREXATE [Concomitant]
     Route: 048

REACTIONS (3)
  - HISTOPLASMOSIS DISSEMINATED [None]
  - MYOSITIS [None]
  - PANNICULITIS [None]
